FAERS Safety Report 18540051 (Version 1)
Quarter: 2020Q4

REPORT INFORMATION
  Report Type: Spontaneous
  Country: US (occurrence: US)
  Receive Date: 20201124
  Receipt Date: 20201124
  Transmission Date: 20210114
  Serious: Yes (Death, Life-Threatening, Disabling, Other)
  Sender: FDA-Public Use
  Company Number: None

PATIENT
  Age: 31 Year
  Sex: Male
  Weight: 103.5 kg

DRUGS (2)
  1. LEXAPRO [Concomitant]
     Active Substance: ESCITALOPRAM OXALATE
  2. MITRAGYNA SPECIOSA KRATOM WVB CAPSULES [Suspect]
     Active Substance: HERBALS\MITRAGYNINE
     Indication: DRUG WITHDRAWAL SYNDROME
     Dosage: ?          QUANTITY:112 CAPSULE(S);OTHER FREQUENCY:UNKNOWN;?
     Route: 048
     Dates: start: 20200701, end: 20201002

REACTIONS (15)
  - Nocturnal dyspnoea [None]
  - Irritability [None]
  - Hallucination, auditory [None]
  - Gait disturbance [None]
  - Fine motor skill dysfunction [None]
  - Gun shot wound [None]
  - Feeling abnormal [None]
  - Fear of death [None]
  - Hypertension [None]
  - Intentional self-injury [None]
  - Dysarthria [None]
  - Fatigue [None]
  - Aggression [None]
  - Completed suicide [None]
  - Overdose [None]

NARRATIVE: CASE EVENT DATE: 20201002
